FAERS Safety Report 10805435 (Version 1)
Quarter: 2015Q1

REPORT INFORMATION
  Report Type: Report from Study
  Country: US (occurrence: US)
  Receive Date: 20150217
  Receipt Date: 20150217
  Transmission Date: 20150721
  Serious: No
  Sender: FDA-Public Use
  Company Number: US-ABBVIE-14K-163-1257456-00

PATIENT
  Age: 32 Year
  Sex: Female

DRUGS (9)
  1. HUMIRA [Suspect]
     Active Substance: ADALIMUMAB
     Indication: ANKYLOSING SPONDYLITIS
     Dates: start: 20140530
  2. NOVOLOG [Concomitant]
     Active Substance: INSULIN ASPART
     Indication: TYPE 1 DIABETES MELLITUS
  3. ROBAXIN [Concomitant]
     Active Substance: METHOCARBAMOL
     Indication: ANKYLOSING SPONDYLITIS
  4. UNKNOWN MEDICATIONS [Concomitant]
     Active Substance: UNSPECIFIED INGREDIENT
     Indication: PRODUCT USED FOR UNKNOWN INDICATION
  5. METHOTREXATE [Concomitant]
     Active Substance: METHOTREXATE
     Indication: ANKYLOSING SPONDYLITIS
     Dosage: EVERY SATURDAY AND SUNDAY
     Dates: start: 201406
  6. OXYCODONE [Concomitant]
     Active Substance: OXYCODONE
     Indication: PAIN
  7. HUMIRA [Suspect]
     Active Substance: ADALIMUMAB
     Dates: start: 20140627
  8. TRAMADOL [Concomitant]
     Active Substance: TRAMADOL
     Indication: ANKYLOSING SPONDYLITIS
  9. MELOXICAM. [Concomitant]
     Active Substance: MELOXICAM
     Indication: ANKYLOSING SPONDYLITIS

REACTIONS (1)
  - Drug ineffective [Not Recovered/Not Resolved]

NARRATIVE: CASE EVENT DATE: 20140530
